FAERS Safety Report 15554322 (Version 3)
Quarter: 2018Q4

REPORT INFORMATION
  Report Type: Spontaneous
  Country: US (occurrence: US)
  Receive Date: 20181026
  Receipt Date: 20181106
  Transmission Date: 20190205
  Serious: No
  Sender: FDA-Public Use
  Company Number: US-PFIZER INC-2018435577

PATIENT
  Age: 53 Year
  Sex: Female
  Weight: 81 kg

DRUGS (1)
  1. LYRICA [Suspect]
     Active Substance: PREGABALIN
     Indication: LIMB DISCOMFORT
     Dosage: 75 MG, 3X/DAY
     Dates: start: 2018

REACTIONS (3)
  - Product use in unapproved indication [Unknown]
  - Discharge [Unknown]
  - Oedema peripheral [Not Recovered/Not Resolved]

NARRATIVE: CASE EVENT DATE: 2018
